FAERS Safety Report 13584805 (Version 2)
Quarter: 2017Q2

REPORT INFORMATION
  Report Type: Spontaneous
  Country: US (occurrence: US)
  Receive Date: 20170526
  Receipt Date: 20170622
  Transmission Date: 20170830
  Serious: No
  Sender: FDA-Public Use
  Company Number: US-BAYER-2017-098261

PATIENT
  Age: 17 Year
  Sex: Female
  Weight: 62.59 kg

DRUGS (1)
  1. SKYLA [Suspect]
     Active Substance: LEVONORGESTREL
     Indication: CONTRACEPTION
     Dosage: 14 MCG/24HR, CONT
     Route: 015
     Dates: start: 20170412

REACTIONS (8)
  - Pelvic pain [None]
  - Menstruation irregular [None]
  - Vaginal discharge [None]
  - Vulvovaginal dryness [None]
  - Device expulsion [None]
  - Vulvovaginal pruritus [None]
  - Vulvovaginal burning sensation [None]
  - Dyspareunia [None]

NARRATIVE: CASE EVENT DATE: 2017
